FAERS Safety Report 6846935-1 (Version None)
Quarter: 2010Q3

REPORT INFORMATION
  Report Type: 
  Country: None (occurrence: None)
  Receive Date: 20100715
  Receipt Date: 20071116
  Transmission Date: 20110219
  Serious: No
  Sender: FDA-Public Use
  Company Number: US-PFIZER INC-2007079493

PATIENT
  Sex: Female
  Weight: 79.545 kg

DRUGS (8)
  1. CHANTIX [Suspect]
     Indication: SMOKING CESSATION THERAPY
     Route: 048
     Dates: start: 20070725, end: 20070901
  2. INDOMETHACIN [Concomitant]
  3. LISINOPRIL [Concomitant]
     Indication: BLOOD PRESSURE ABNORMAL
  4. ZOLOFT [Concomitant]
  5. CRESTOR [Concomitant]
  6. VITAMINS [Concomitant]
  7. CALCIUM [Concomitant]
  8. GLUCOSAMINE [Concomitant]

REACTIONS (5)
  - ABDOMINAL DISCOMFORT [None]
  - GINGIVITIS [None]
  - GLOSSODYNIA [None]
  - LIP BLISTER [None]
  - VOMITING [None]
